FAERS Safety Report 17932207 (Version 3)
Quarter: 2020Q3

REPORT INFORMATION
  Report Type: Other
  Country: US (occurrence: US)
  Receive Date: 20200624
  Receipt Date: 20200727
  Transmission Date: 20201103
  Serious: Yes (Death)
  Sender: FDA-Public Use
  Company Number: US-ROCHE-2628876

PATIENT
  Age: 73 Year
  Sex: Male

DRUGS (5)
  1. PERJETA [Suspect]
     Active Substance: PERTUZUMAB
     Indication: COLON CANCER
     Dosage: INFUSE 420MG INTRAVENOUSLY EVERY 21 DAY(S)?FORMULATION VIAL
     Route: 042
  2. HERCEPTIN [Suspect]
     Active Substance: TRASTUZUMAB
     Indication: PRODUCT USED FOR UNKNOWN INDICATION
     Dosage: INFUSE 403MG INTRAVENOUSLY EVERY 21 DAY(S)?FORMULATION VIAL 150 MG
     Route: 042
  3. PERJETA [Suspect]
     Active Substance: PERTUZUMAB
     Indication: RETROPERITONEAL CANCER
  4. AVASTIN [Suspect]
     Active Substance: BEVACIZUMAB
     Indication: COLON CANCER
     Route: 065
  5. AVASTIN [Suspect]
     Active Substance: BEVACIZUMAB
     Indication: COLON CANCER

REACTIONS (3)
  - Death [Fatal]
  - Intentional product use issue [Unknown]
  - Off label use [Unknown]

NARRATIVE: CASE EVENT DATE: 20130120
